FAERS Safety Report 4749560-1 (Version None)
Quarter: 2005Q3

REPORT INFORMATION
  Report Type: 
  Country: None (occurrence: None)
  Receive Date: 20050822
  Receipt Date: 20050722
  Transmission Date: 20060218
  Serious: Yes (Life-Threatening, Other)
  Sender: FDA-Public Use
  Company Number: US-GLAXOSMITHKLINE-A0567291A

PATIENT
  Age: 55 Year
  Sex: Female
  Weight: 74.5 kg

DRUGS (3)
  1. PARNATE [Suspect]
     Indication: DEPRESSION
     Dosage: 20MG TWICE PER DAY
     Route: 048
     Dates: end: 20050720
  2. ABILIFY [Concomitant]
     Route: 048
  3. KLONOPIN [Concomitant]
     Dosage: 2.5MG PER DAY
     Route: 048

REACTIONS (2)
  - FOOD INTERACTION [None]
  - HYPERTENSIVE CRISIS [None]
